FAERS Safety Report 7778936-3 (Version None)
Quarter: 2011Q3

REPORT INFORMATION
  Report Type: 
  Country: None (occurrence: None)
  Receive Date: 20110926
  Receipt Date: 20110916
  Transmission Date: 20111222
  Serious: Yes (Other)
  Sender: FDA-Public Use
  Company Number: NL-BAXTER-2011BH029531

PATIENT
  Age: 60 Year
  Sex: Female

DRUGS (5)
  1. GAMMAGARD LIQUID [Suspect]
     Route: 042
     Dates: start: 20110901, end: 20110901
  2. GAMMAGARD LIQUID [Suspect]
     Route: 042
     Dates: start: 20110916, end: 20110916
  3. GAMMAGARD LIQUID [Suspect]
     Indication: IMMUNODEFICIENCY
     Route: 042
     Dates: start: 20100413, end: 20100413
  4. GAMMAGARD LIQUID [Suspect]
     Route: 042
     Dates: start: 20110916, end: 20110916
  5. GAMMAGARD LIQUID [Suspect]
     Route: 042
     Dates: start: 20110901, end: 20110901

REACTIONS (4)
  - MYALGIA [None]
  - PAIN [None]
  - BACK PAIN [None]
  - HEADACHE [None]
